FAERS Safety Report 22334491 (Version 1)
Quarter: 2023Q2

REPORT INFORMATION
  Report Type: Spontaneous
  Country: US (occurrence: US)
  Receive Date: 20230517
  Receipt Date: 20230517
  Transmission Date: 20230722
  Serious: No
  Sender: FDA-Public Use
  Company Number: US-drreddys-SPO/USA/23/0164332

PATIENT
  Age: 24 Year
  Sex: Female

DRUGS (2)
  1. ACCUTANE [Suspect]
     Active Substance: ISOTRETINOIN
     Indication: Product used for unknown indication
     Dosage: RMA ISSUE DATE: 22 MARCH 2023 01:27:50 PM
  2. ACCUTANE [Suspect]
     Active Substance: ISOTRETINOIN
     Dosage: RMA ISSUE DATE: 22 MARCH 2023 01:27:50 PM

REACTIONS (3)
  - Lip dry [Unknown]
  - Epistaxis [Unknown]
  - Headache [Unknown]
